FAERS Safety Report 4470014-4 (Version None)
Quarter: 2004Q3

REPORT INFORMATION
  Report Type: 
  Country: None (occurrence: None)
  Receive Date: 20040920
  Receipt Date: 20040607
  Transmission Date: 20050211
  Serious: No
  Sender: FDA-Public Use
  Company Number: PHEH2004US06322

PATIENT
  Age: 88 Year
  Sex: Male

DRUGS (5)
  1. ZOMETA [Suspect]
     Indication: METASTASES TO BONE
     Dosage: 4 MG, QMO, INTRAVENOUS
     Route: 042
     Dates: start: 20040506
  2. TYLENOL [Concomitant]
  3. TRIAMTERENE [Concomitant]
  4. TYLENOL W/ CODEINE NO. 3 [Concomitant]
  5. ZOLADEX [Concomitant]

REACTIONS (5)
  - ANOREXIA [None]
  - ASTHENIA [None]
  - DYSSTASIA [None]
  - HYPERHIDROSIS [None]
  - NAUSEA [None]
